FAERS Safety Report 9181779 (Version 2)
Quarter: 2013Q2

REPORT INFORMATION
  Report Type: Spontaneous
  Country: US (occurrence: US)
  Receive Date: 20130322
  Receipt Date: 20130529
  Transmission Date: 20140414
  Serious: Yes (Hospitalization, Other)
  Sender: FDA-Public Use
  Company Number: US-PFIZER INC-2013093049

PATIENT
  Age: 73 Year
  Sex: Female

DRUGS (9)
  1. CHANTIX [Suspect]
     Indication: SMOKING CESSATION THERAPY
     Dosage: UNK
     Dates: start: 20080401, end: 20080428
  2. PROAIR HFA [Concomitant]
     Dosage: TWO PUFFS EVERY FOUR HOURS
     Route: 048
     Dates: start: 20081219
  3. LISINOPRIL [Concomitant]
     Dosage: ONE TABLET, 1X/DAY
     Route: 048
  4. ADVAIR DISKUS [Concomitant]
     Dosage: ONE PUFF, 2X/DAY
     Route: 048
  5. VYTORIN [Concomitant]
     Dosage: ONE TABLET, 1X/DAY
     Route: 048
  6. GLYBURIDE [Concomitant]
     Dosage: ONE TABLET, 1X/DAY
     Route: 048
  7. FUROSEMIDE [Concomitant]
     Dosage: ONE TABLET, 1X/DAY
     Route: 048
  8. METFORMIN [Concomitant]
     Dosage: ONE TABLET, 1X/DAY
     Route: 048
  9. ASPIR-TRIN [Concomitant]
     Dosage: ONE TABLET, 1X/DAY
     Route: 048

REACTIONS (2)
  - Loss of consciousness [Unknown]
  - Depression [Unknown]
